FAERS Safety Report 21336178 (Version 1)
Quarter: 2022Q3

REPORT INFORMATION
  Report Type: Spontaneous
  Country: US (occurrence: None)
  Receive Date: 20220914
  Receipt Date: 20220914
  Transmission Date: 20221026
  Serious: Yes (Hospitalization)
  Sender: FDA-Public Use
  Company Number: None

PATIENT
  Sex: Female

DRUGS (15)
  1. NORDITROPIN [Suspect]
     Active Substance: SOMATROPIN
     Indication: Hypopituitarism
     Route: 058
     Dates: start: 20150904
  2. CALCIUM 600 TAB + D [Concomitant]
  3. CELEXA TAB [Concomitant]
  4. CLIMARA DIS [Concomitant]
  5. CORTEF TAB [Concomitant]
  6. MAGNESIUM-OX TAB [Concomitant]
  7. MESTINON TAB [Concomitant]
  8. MIRALAX POW 3350 [Concomitant]
  9. PAMIDRONATE INJ [Concomitant]
  10. PROMETRIUM CAP [Concomitant]
  11. SYNTHROID TAB [Concomitant]
  12. VITAMIN B-2 [Concomitant]
  13. VITAMIN D2 TAB [Concomitant]
  14. ZANTAC TAB [Concomitant]
  15. ZOFRAN TAB [Concomitant]

REACTIONS (1)
  - Hospitalisation [None]
